FAERS Safety Report 16007421 (Version 6)
Quarter: 2019Q3

REPORT INFORMATION
  Report Type: Spontaneous
  Country: US (occurrence: US)
  Receive Date: 20190226
  Receipt Date: 20190807
  Transmission Date: 20191004
  Serious: Yes (Death)
  Sender: FDA-Public Use
  Company Number: US-PFIZER INC-2019086022

PATIENT
  Age: 85 Year
  Sex: Female
  Weight: 43 kg

DRUGS (2)
  1. AMLODIPINE BESILATE [Suspect]
     Active Substance: AMLODIPINE BESYLATE
     Dosage: UNK
  2. AMLODIPINE BESILATE [Suspect]
     Active Substance: AMLODIPINE BESYLATE
     Dosage: UNK

REACTIONS (6)
  - Death [Fatal]
  - Dizziness [Unknown]
  - Constipation [Unknown]
  - Blood pressure inadequately controlled [Unknown]
  - Diarrhoea [Unknown]
  - Nausea [Unknown]
